FAERS Safety Report 14674185 (Version 1)
Quarter: 2018Q1

REPORT INFORMATION
  Report Type: Spontaneous
  Country: US (occurrence: US)
  Receive Date: 20180322
  Receipt Date: 20180322
  Transmission Date: 20180509
  Serious: Yes (Other)
  Sender: FDA-Public Use
  Company Number: None

PATIENT
  Age: 55 Year
  Sex: Female
  Weight: 66.15 kg

DRUGS (1)
  1. VARENICLINE [Suspect]
     Active Substance: VARENICLINE
     Indication: SMOKING CESSATION THERAPY
     Route: 048
     Dates: start: 20180207, end: 20180312

REACTIONS (5)
  - Tremor [None]
  - Nervousness [None]
  - Feeling abnormal [None]
  - Kidney infection [None]
  - Nephrolithiasis [None]

NARRATIVE: CASE EVENT DATE: 20180318
